FAERS Safety Report 17038804 (Version 1)
Quarter: 2019Q4

REPORT INFORMATION
  Report Type: Spontaneous
  Country: PT (occurrence: PT)
  Receive Date: 20191115
  Receipt Date: 20191115
  Transmission Date: 20200122
  Serious: Yes (Other)
  Sender: FDA-Public Use
  Company Number: PT-ASCEND THERAPEUTICS US, LLC-2076905

PATIENT
  Age: 61 Year
  Sex: Male

DRUGS (4)
  1. BINOSTO [Suspect]
     Active Substance: ALENDRONATE SODIUM
     Indication: OSTEOPOROSIS
     Dates: start: 201501
  2. CHOLECALCIFEROL [Concomitant]
     Active Substance: CHOLECALCIFEROL
     Dates: start: 201501
  3. CALCIUM CARBONATE. [Concomitant]
     Active Substance: CALCIUM CARBONATE
     Dates: start: 201501
  4. ALENDRONATE SODIUM. [Suspect]
     Active Substance: ALENDRONATE SODIUM

REACTIONS (3)
  - Product use in unapproved indication [Unknown]
  - Atypical fracture [Unknown]
  - Tibia fracture [Unknown]

NARRATIVE: CASE EVENT DATE: 201501
